FAERS Safety Report 24808598 (Version 3)
Quarter: 2025Q3

REPORT INFORMATION
  Report Type: Spontaneous
  Country: US (occurrence: US)
  Receive Date: 20250106
  Receipt Date: 20250816
  Transmission Date: 20251020
  Serious: No
  Sender: ALEXION PHARMACEUTICALS
  Company Number: US-ASTRAZENECA-202412USA025453US

PATIENT

DRUGS (1)
  1. BUDESONIDE [Suspect]
     Active Substance: BUDESONIDE
     Route: 065

REACTIONS (11)
  - Food intolerance [Unknown]
  - Nausea [Unknown]
  - General physical health deterioration [Unknown]
  - Mental disorder [Unknown]
  - Eosinophilic oesophagitis [Unknown]
  - Hyperhidrosis [Unknown]
  - Fatigue [Unknown]
  - Food intolerance [Unknown]
  - Dairy intolerance [Unknown]
  - Feeling hot [Unknown]
  - Feelings of worthlessness [Unknown]
